FAERS Safety Report 8815840 (Version 3)
Quarter: 2012Q4

REPORT INFORMATION
  Report Type: 
  Country: US (occurrence: US)
  Receive Date: 20120928
  Receipt Date: 20121121
  Transmission Date: 20130627
  Serious: Yes (Hospitalization, Other)
  Sender: FDA-Public Use
  Company Number: US-009507513-2012SP034972

PATIENT

DRUGS (4)
  1. NUVARING [Suspect]
     Indication: CONTRACEPTION
     Dosage: 0.12-0.015 mg/24 hr x 3 weeks per month
     Route: 067
     Dates: start: 20081118, end: 20090818
  2. NUVARING [Suspect]
     Dosage: 0.12-0.015 mg/24 hr every 3 weeks
     Route: 067
     Dates: start: 20091117, end: 20100702
  3. VITAMINS (UNSPECIFIED) [Concomitant]
     Indication: ROUTINE HEALTH MAINTENANCE
     Dosage: UNK
     Dates: start: 20081118, end: 20100709
  4. IBUPROFEN [Concomitant]
     Indication: PRODUCT USED FOR UNKNOWN INDICATION
     Dosage: UNK
     Dates: start: 20081118, end: 20100709

REACTIONS (9)
  - Pulmonary mass [Unknown]
  - Pulmonary embolism [Unknown]
  - Leukocytosis [Recovered/Resolved]
  - Withdrawal bleed [Unknown]
  - Cervical dysplasia [Recovered/Resolved]
  - Anogenital warts [Unknown]
  - Amenorrhoea [Recovered/Resolved]
  - Hypersensitivity [Unknown]
  - Limb injury [Unknown]
